FAERS Safety Report 6177821-0 (Version None)
Quarter: 2009Q2

REPORT INFORMATION
  Report Type: 
  Country: None (occurrence: None)
  Receive Date: 20090430
  Receipt Date: 20090417
  Transmission Date: 20091009
  Serious: Yes (Death, Hospitalization)
  Sender: FDA-Public Use
  Company Number: 2009000155

PATIENT
  Age: 87 Year
  Sex: Female
  Weight: 33.9 kg

DRUGS (2)
  1. ERLOTINIB(ERLOTINIB)(TABLET)(ERLOTINIB) [Suspect]
     Indication: LUNG ADENOCARCINOMA
     Dosage: (150 MG,QD),ORAL
     Route: 048
     Dates: start: 20080912, end: 20080925
  2. DIGOXIN [Concomitant]

REACTIONS (8)
  - LUNG ADENOCARCINOMA [None]
  - MALIGNANT NEOPLASM PROGRESSION [None]
  - MALIGNANT PLEURAL EFFUSION [None]
  - MALNUTRITION [None]
  - OEDEMA [None]
  - PLEURAL EFFUSION [None]
  - RESPIRATORY ACIDOSIS [None]
  - RESPIRATORY FAILURE [None]
